FAERS Safety Report 6907623-6 (Version None)
Quarter: 2010Q3

REPORT INFORMATION
  Report Type: 
  Country: None (occurrence: None)
  Receive Date: 20100805
  Receipt Date: 20100802
  Transmission Date: 20110219
  Serious: Yes (Other)
  Sender: FDA-Public Use
  Company Number: US-ASTRAZENECA-2007UW06157

PATIENT
  Age: 47 Year
  Sex: Female
  Weight: 84.4 kg

DRUGS (34)
  1. SEROQUEL [Suspect]
     Indication: BIPOLAR DISORDER
     Dosage: 100 MG TO 400 MG
     Route: 048
     Dates: start: 19990601, end: 20000201
  2. SEROQUEL [Suspect]
     Dosage: 250MG - 300 MG, AT NIGHT
     Route: 048
     Dates: start: 19990621
  3. SEROQUEL [Suspect]
     Dosage: 400 MG TO 600 MG
     Route: 048
     Dates: start: 20021001, end: 20030101
  4. SEROQUEL [Suspect]
     Dosage: 600 MG
     Route: 048
     Dates: start: 20030201, end: 20031001
  5. SEROQUEL [Suspect]
     Dosage: 600 MG
     Route: 048
     Dates: start: 20031101, end: 20080401
  6. SEROQUEL [Suspect]
     Dosage: 300 MG
     Route: 048
     Dates: start: 20040301, end: 20040501
  7. SEROQUEL [Suspect]
     Dosage: 300 MG TO 800 MG
     Route: 048
     Dates: start: 20041201, end: 20050801
  8. SEROQUEL [Suspect]
     Route: 048
     Dates: start: 20050901, end: 20060501
  9. SEROQUEL [Suspect]
     Route: 048
     Dates: start: 20050910, end: 20070111
  10. SEROQUEL [Suspect]
     Route: 048
     Dates: start: 20070301, end: 20070401
  11. SEROQUEL [Suspect]
     Route: 048
     Dates: end: 20080401
  12. RISPERDAL [Suspect]
     Indication: BIPOLAR DISORDER
     Dosage: 3 MG TO 4 MG
     Route: 048
     Dates: start: 19951001, end: 19971001
  13. RISPERDAL [Suspect]
     Dosage: 2MG -4MG
     Route: 048
     Dates: start: 19970806
  14. RISPERDAL [Suspect]
     Route: 048
     Dates: start: 20060714, end: 20060814
  15. ZYPREXA [Concomitant]
     Indication: SLEEP DISORDER
     Dosage: 5MG - 15MG
     Dates: start: 19970812, end: 20000701
  16. ZYPREXA [Concomitant]
     Indication: BIPOLAR DISORDER
     Dosage: 5MG - 15MG
     Dates: start: 19970812, end: 20000701
  17. ZYPREXA [Concomitant]
     Dosage: 10 MG TO 20 MG
     Dates: start: 20020901, end: 20021001
  18. ZYPREXA [Concomitant]
     Dosage: 10 MG TO 20 MG
     Dates: start: 20020901, end: 20021001
  19. AMBIEN [Concomitant]
     Dates: start: 20020925
  20. CELEXA [Concomitant]
     Dosage: 40MG -80MG
     Dates: start: 19990714
  21. DEPAKOTE [Concomitant]
     Dosage: 250 MG TO 1250 MG
     Dates: start: 19960101, end: 20070101
  22. DEPAKOTE [Concomitant]
     Dosage: 1000 MG - 2000 MG
     Dates: start: 19970806
  23. KLONOPIN [Concomitant]
     Dosage: 3MG - 300MG
     Dates: start: 19970806
  24. RESTORIL [Concomitant]
     Dates: start: 20000416
  25. EFFEXOR [Concomitant]
     Dates: start: 20020925
  26. DESYREL [Concomitant]
     Dosage: 50MG - 100MG
     Dates: start: 19980805
  27. DEXEDRINE [Concomitant]
     Dosage: 10 MG AT MORNING AND 5 MG AT NOON
     Dates: start: 19980805
  28. ATIVAN [Concomitant]
     Dates: start: 19990714
  29. AMANTADINE HCL [Concomitant]
     Dates: start: 20000416
  30. PRILOSEC [Concomitant]
     Indication: ABDOMINAL DISCOMFORT
     Route: 048
     Dates: start: 20000416
  31. HALDOL [Concomitant]
     Indication: AGITATION
     Dosage: 2MG EVERY FOUR HOURLY, AS REQUIRED
     Dates: start: 20000416
  32. LAMICTAL [Concomitant]
     Dosage: 1000MG IN THE MORNING AND 50 MG AT NIGHT
     Dates: start: 20070722
  33. ABILIFY [Concomitant]
     Dates: start: 20060101
  34. GEODON [Concomitant]
     Dates: start: 20060101, end: 20070101

REACTIONS (2)
  - NEUROPATHY PERIPHERAL [None]
  - TYPE 2 DIABETES MELLITUS [None]
